FAERS Safety Report 10192052 (Version 1)
Quarter: 2014Q2

REPORT INFORMATION
  Report Type: Spontaneous
  Country: HR (occurrence: HR)
  Receive Date: 20140523
  Receipt Date: 20140523
  Transmission Date: 20141212
  Serious: Yes (Other)
  Sender: FDA-Public Use
  Company Number: HR-PFIZER INC-2014137338

PATIENT
  Age: 61 Year
  Sex: Female

DRUGS (2)
  1. SORTIS [Suspect]
     Indication: HYPERCHOLESTEROLAEMIA
     Dosage: 40 MG; 1X1
     Route: 048
     Dates: start: 201306
  2. BETALOC ZOK ^ASTRA^ [Concomitant]
     Dosage: 50 MG, 1X/DAY
     Route: 048

REACTIONS (4)
  - Vision blurred [Recovering/Resolving]
  - Visual acuity reduced [Recovering/Resolving]
  - Cataract [Unknown]
  - Cataract operation [Unknown]
